FAERS Safety Report 4850784-3 (Version None)
Quarter: 2005Q4

REPORT INFORMATION
  Report Type: 
  Country: None (occurrence: None)
  Receive Date: 20051212
  Receipt Date: 20051202
  Transmission Date: 20060501
  Serious: Yes (Other)
  Sender: FDA-Public Use
  Company Number: 2005AP06285

PATIENT
  Age: 48 Year
  Sex: Male

DRUGS (3)
  1. ANAPEINE [Suspect]
     Indication: LOCAL ANAESTHESIA
     Route: 053
     Dates: start: 20051129, end: 20051129
  2. CARBOCAIN [Concomitant]
     Indication: INFILTRATION ANAESTHESIA
     Route: 050
     Dates: start: 20051129, end: 20051129
  3. FENTANEST [Concomitant]
     Route: 042
     Dates: start: 20051129, end: 20051129

REACTIONS (3)
  - CONVULSION [None]
  - DRUG TOXICITY [None]
  - THERAPEUTIC AGENT TOXICITY [None]
